FAERS Safety Report 4797280-X (Version None)
Quarter: 2005Q4

REPORT INFORMATION
  Report Type: 
  Country: None (occurrence: None)
  Receive Date: 20051013
  Receipt Date: 20030424
  Transmission Date: 20060501
  Serious: Yes (Hospitalization)
  Sender: FDA-Public Use
  Company Number: ES-GLAXOSMITHKLINE-B0298213A

PATIENT
  Age: 67 Year
  Sex: Female

DRUGS (2)
  1. AMOXICILLIN [Suspect]
     Indication: DENTAL DISORDER PROPHYLAXIS
     Dosage: 1G UNKNOWN
     Route: 048
  2. MEPIVACAINE HCL [Concomitant]
     Route: 023

REACTIONS (14)
  - ABDOMINAL PAIN [None]
  - ANAPHYLACTIC SHOCK [None]
  - COLITIS ISCHAEMIC [None]
  - DIARRHOEA HAEMORRHAGIC [None]
  - DIZZINESS [None]
  - GASTROINTESTINAL NECROSIS [None]
  - HYPOTENSION [None]
  - INTESTINAL FUNCTIONAL DISORDER [None]
  - LARGE INTESTINAL ULCER [None]
  - LOSS OF CONSCIOUSNESS [None]
  - MUCOSAL ULCERATION [None]
  - OEDEMA MUCOSAL [None]
  - RASH ERYTHEMATOUS [None]
  - RECTAL HAEMORRHAGE [None]
